FAERS Safety Report 8735333 (Version 6)
Quarter: 2013Q2

REPORT INFORMATION
  Report Type: Spontaneous
  Country: US (occurrence: US)
  Receive Date: 20120822
  Receipt Date: 20130402
  Transmission Date: 20140414
  Serious: Yes (Hospitalization, Other)
  Sender: FDA-Public Use
  Company Number: US-009507513-1207USA008016

PATIENT
  Sex: Female
  Weight: 83 kg

DRUGS (11)
  1. FOSAMAX [Suspect]
     Indication: OSTEOPENIA
     Dosage: UNK
     Route: 048
     Dates: start: 1997, end: 201003
  2. FOSAMAX [Suspect]
     Indication: OSTEOPOROSIS
     Dosage: 10 MG, UNK
     Route: 048
     Dates: start: 199510, end: 200201
  3. FOSAMAX [Suspect]
     Dosage: 70 MG, UNK
     Route: 048
     Dates: start: 200201, end: 20080301
  4. ALENDRONATE SODIUM [Suspect]
     Indication: OSTEOPENIA
     Dosage: 70 MG, UNK
     Route: 048
     Dates: start: 20080301, end: 20100314
  5. ALENDRONATE SODIUM [Suspect]
     Indication: OSTEOPOROSIS
  6. TRI-BORON [Concomitant]
     Dosage: UNK
     Dates: start: 1993
  7. OMEGA-3 MARINE TRIGLYCERIDES [Concomitant]
     Dosage: 600 MG, UNK
     Dates: start: 1993
  8. CALCIUM (UNSPECIFIED) (+) VITAMIN D (UNSPECIFIED) [Concomitant]
     Dosage: UNK
     Dates: start: 1993
  9. CHONDROITIN SULFATE SODIUM (+) GLUCOSAMINE SULFATE [Concomitant]
     Dosage: 200 MG, UNK
     Dates: start: 1993
  10. HORMONES (UNSPECIFIED) [Concomitant]
     Dosage: UNK
     Dates: start: 1985, end: 2004
  11. ASCORBIC ACID [Concomitant]
     Dosage: 1000 MG, UNK
     Dates: start: 1993

REACTIONS (33)
  - Open reduction of fracture [Unknown]
  - Procedural haemorrhage [Unknown]
  - Device failure [Unknown]
  - Bone graft [Unknown]
  - Spinal disorder [Unknown]
  - Oral surgery [Unknown]
  - Periodontal operation [Unknown]
  - Foot operation [Unknown]
  - Fall [Unknown]
  - Femur fracture [Unknown]
  - Medical device removal [Unknown]
  - Femur fracture [Unknown]
  - Gingivectomy [Unknown]
  - Adverse event [Unknown]
  - Impaired healing [Unknown]
  - Rheumatoid arthritis [Unknown]
  - Endodontic procedure [Unknown]
  - Hypertension [Unknown]
  - Fracture nonunion [Unknown]
  - Fall [Unknown]
  - Limb injury [Unknown]
  - Intervertebral disc degeneration [Unknown]
  - Vertebral foraminal stenosis [Unknown]
  - Lumbar radiculopathy [Unknown]
  - Uterine dilation and curettage [Unknown]
  - Osteoarthritis [Unknown]
  - Fall [Unknown]
  - Tinnitus [Unknown]
  - Vision blurred [Unknown]
  - Dry skin [Unknown]
  - Varicose vein [Unknown]
  - Pain in extremity [Unknown]
  - Back pain [Unknown]
